FAERS Safety Report 17298409 (Version 6)
Quarter: 2022Q4

REPORT INFORMATION
  Report Type: Spontaneous
  Country: US (occurrence: US)
  Receive Date: 20200121
  Receipt Date: 20221123
  Transmission Date: 20230113
  Serious: Yes (Other)
  Sender: FDA-Public Use
  Company Number: US-VERTEX PHARMACEUTICALS-2020-000591

PATIENT
  Age: 12 Year
  Sex: Male

DRUGS (1)
  1. TRIKAFTA [Suspect]
     Active Substance: ELEXACAFTOR\IVACAFTOR\TEZACAFTOR
     Indication: Cystic fibrosis
     Dosage: FULL DOSE
     Route: 048
     Dates: start: 20191206, end: 20200129

REACTIONS (8)
  - Feeling abnormal [Unknown]
  - Mood swings [Unknown]
  - Suicidal ideation [Unknown]
  - Depression [Unknown]
  - Abnormal behaviour [Unknown]
  - Disturbance in attention [Unknown]
  - Dissociation [Unknown]
  - Educational problem [Unknown]

NARRATIVE: CASE EVENT DATE: 20200101
